FAERS Safety Report 6815712-X (Version None)
Quarter: 2010Q3

REPORT INFORMATION
  Report Type: 
  Country: None (occurrence: None)
  Receive Date: 20100702
  Receipt Date: 20100622
  Transmission Date: 20110219
  Serious: Yes (Other)
  Sender: FDA-Public Use
  Company Number: US-ABBOTT-10P-163-0653000-00

PATIENT
  Sex: Female
  Weight: 74.91 kg

DRUGS (4)
  1. HUMIRA [Suspect]
     Indication: RHEUMATOID ARTHRITIS
     Route: 058
     Dates: end: 20100401
  2. SYNTHROID [Concomitant]
     Indication: THYROID DISORDER
  3. DARVOCET [Concomitant]
     Indication: ARTHRALGIA
  4. CELEXA [Concomitant]
     Indication: DEPRESSION

REACTIONS (3)
  - CALCINOSIS [None]
  - IMPAIRED HEALING [None]
  - TENDON RUPTURE [None]
